FAERS Safety Report 9630887 (Version 1)
Quarter: 2013Q4

REPORT INFORMATION
  Report Type: Spontaneous
  Country: US (occurrence: None)
  Receive Date: 20131016
  Receipt Date: 20131016
  Transmission Date: 20140711
  Serious: Yes (Other)
  Sender: FDA-Public Use
  Company Number: None

PATIENT
  Age: 48 Year
  Sex: Male
  Weight: 68.04 kg

DRUGS (1)
  1. PREVACID 24 HR [Suspect]
     Indication: GASTROOESOPHAGEAL REFLUX DISEASE
     Route: 048
     Dates: start: 20100505, end: 20100505

REACTIONS (13)
  - Dyspepsia [None]
  - Abdominal distension [None]
  - Decreased appetite [None]
  - Impaired gastric emptying [None]
  - Dry mouth [None]
  - Somnolence [None]
  - Fatigue [None]
  - Lethargy [None]
  - Apathy [None]
  - Insomnia [None]
  - Headache [None]
  - Depression [None]
  - Feeling abnormal [None]
